FAERS Safety Report 12150632 (Version 1)
Quarter: 2016Q1

REPORT INFORMATION
  Report Type: Report from Study
  Country: JP (occurrence: JP)
  Receive Date: 20160304
  Receipt Date: 20160304
  Transmission Date: 20160526
  Serious: Yes (Other)
  Sender: FDA-Public Use
  Company Number: JP-BRISTOL-MYERS SQUIBB COMPANY-BMS-2016-016133

PATIENT
  Age: 79 Year
  Sex: Male

DRUGS (2)
  1. DACLATASVIR DIHYDROCHLORIDE [Suspect]
     Active Substance: DACLATASVIR DIHYDROCHLORIDE
     Indication: CHRONIC HEPATITIS C
     Route: 065
  2. ASUNAPREVIR [Suspect]
     Active Substance: ASUNAPREVIR
     Indication: CHRONIC HEPATITIS C
     Route: 065

REACTIONS (2)
  - Pyrexia [Unknown]
  - Rhabdomyolysis [Unknown]
